FAERS Safety Report 5251291-9 (Version None)
Quarter: 2007Q1

REPORT INFORMATION
  Report Type: 
  Country: None (occurrence: None)
  Receive Date: 20070228
  Receipt Date: 20061227
  Transmission Date: 20070707
  Serious: No
  Sender: FDA-Public Use
  Company Number: US-GLAXOSMITHKLINE-A0632913A

PATIENT
  Sex: Male

DRUGS (1)
  1. LAMICTAL [Suspect]
     Indication: DEPRESSION
     Dosage: 100MG TWICE PER DAY
     Route: 065
     Dates: start: 20060101

REACTIONS (6)
  - FATIGUE [None]
  - FEELING ABNORMAL [None]
  - HYPOAESTHESIA ORAL [None]
  - LIP PAIN [None]
  - LIP SWELLING [None]
  - MOUTH ULCERATION [None]
